FAERS Safety Report 9511997 (Version 1)
Quarter: 2013Q3

REPORT INFORMATION
  Report Type: Report from Study
  Country: EC (occurrence: EC)
  Receive Date: 20130910
  Receipt Date: 20130910
  Transmission Date: 20140515
  Serious: Yes (Other)
  Sender: FDA-Public Use
  Company Number: PHHY2013EC099140

PATIENT
  Age: 74 Year
  Sex: Female

DRUGS (2)
  1. EXFORGE HCT [Suspect]
     Dosage: 1 DF, (160/12.5/5 MG)
     Route: 048
     Dates: start: 201110
  2. EUTIROX [Concomitant]
     Dosage: 50 UG, UNK
     Dates: start: 201305

REACTIONS (1)
  - Hip fracture [Recovering/Resolving]
